FAERS Safety Report 8314721-1 (Version None)
Quarter: 2012Q2

REPORT INFORMATION
  Report Type: 
  Country: None (occurrence: None)
  Receive Date: 20120426
  Receipt Date: 20120418
  Transmission Date: 20120825
  Serious: Yes (Hospitalization)
  Sender: FDA-Public Use
  Company Number: US-BAYER-2012-013084

PATIENT
  Age: 20 Year
  Sex: Female
  Weight: 62.585 kg

DRUGS (7)
  1. YAZ [Suspect]
     Indication: PREMENSTRUAL SYNDROME
     Dosage: UNK
     Dates: start: 20080801, end: 20090701
  2. LEVSIN PB [Concomitant]
     Indication: ABDOMINAL PAIN
     Dosage: AS PRESCRIBED
     Dates: start: 20100225, end: 20100303
  3. IBUPROFEN [Concomitant]
     Dosage: UNK UNK, PRN
  4. DROSPIRENONE AND ETHINYL ESTRADIOL [Suspect]
     Indication: CONTRACEPTION
     Dosage: UNK
     Dates: start: 20080601, end: 20080701
  5. DROSPIRENONE AND ETHINYL ESTRADIOL [Suspect]
     Indication: PREMENSTRUAL SYNDROME
     Dosage: UNK
     Dates: start: 20090701, end: 20100201
  6. BENADRYL [Concomitant]
     Indication: URTICARIA
     Dosage: AS PRESCRIBED
     Dates: start: 20100303
  7. YAZ [Suspect]
     Indication: CONTRACEPTION
     Dosage: UNK
     Dates: start: 20080401, end: 20080601

REACTIONS (3)
  - CHOLECYSTITIS ACUTE [None]
  - BILE DUCT STONE [None]
  - CHOLECYSTITIS CHRONIC [None]
